FAERS Safety Report 10083930 (Version 2)
Quarter: 2014Q2

REPORT INFORMATION
  Report Type: Spontaneous
  Country: US (occurrence: US)
  Receive Date: 20140417
  Receipt Date: 20140430
  Transmission Date: 20141212
  Serious: No
  Sender: FDA-Public Use
  Company Number: US-PFIZER INC-2014104223

PATIENT
  Age: 82 Year
  Sex: Female
  Weight: 65.76 kg

DRUGS (1)
  1. ADVIL [Suspect]
     Indication: SLEEP DISORDER
     Dosage: 200MG, DAILY AT BED TIME

REACTIONS (5)
  - Off label use [Unknown]
  - Skin discolouration [Recovering/Resolving]
  - Yawning [Recovering/Resolving]
  - Productive cough [Recovering/Resolving]
  - Mobility decreased [Recovering/Resolving]
